FAERS Safety Report 7435211-4 (Version None)
Quarter: 2011Q2

REPORT INFORMATION
  Report Type: 
  Country: None (occurrence: None)
  Receive Date: 20110415
  Receipt Date: 20110404
  Transmission Date: 20111010
  Serious: Yes (Hospitalization)
  Sender: FDA-Public Use
  Company Number: CIP11000538

PATIENT
  Age: 57 Year
  Sex: Female

DRUGS (5)
  1. NASAREL [Concomitant]
  2. ACTONEL [Suspect]
     Dosage: 150 MG, ORAL
     Route: 048
     Dates: start: 20081202
  3. PROCARDIA XL [Concomitant]
  4. ACTONEL [Suspect]
     Dosage: 35 MG, ONCE WEEKLY, ORAL
     Route: 048
     Dates: start: 20061005, end: 20070713
  5. MONOPRIL [Concomitant]

REACTIONS (10)
  - GINGIVAL SWELLING [None]
  - HYPOPHAGIA [None]
  - ORAL INFECTION [None]
  - ABSCESS ORAL [None]
  - CELLULITIS [None]
  - FLUID INTAKE REDUCED [None]
  - FACIAL PAIN [None]
  - TOOTH EXTRACTION [None]
  - SWELLING FACE [None]
  - EAR PAIN [None]
